FAERS Safety Report 4815105-0 (Version None)
Quarter: 2005Q4

REPORT INFORMATION
  Report Type: 
  Country: None (occurrence: None)
  Receive Date: 20051027
  Receipt Date: 20051018
  Transmission Date: 20060501
  Serious: Yes (Other)
  Sender: FDA-Public Use
  Company Number: 2002-01-0468

PATIENT
  Sex: Male

DRUGS (6)
  1. REBETOL [Suspect]
     Indication: HEPATITIS C
     Dosage: ORAL
     Route: 048
     Dates: start: 20010101, end: 20010701
  2. INTRON A [Suspect]
     Indication: HEPATITIS C
     Dosage: SUBCUTANEOUS
     Route: 058
     Dates: start: 20010101, end: 20010701
  3. DEPAKOTE [Suspect]
  4. ZOLOFT [Suspect]
  5. REMERON [Suspect]
  6. BENZODIAZEPINE (NOS) [Suspect]

REACTIONS (8)
  - DENTAL CARIES [None]
  - DEPRESSION [None]
  - DRY MOUTH [None]
  - INFLUENZA LIKE ILLNESS [None]
  - PERIODONTAL DISEASE [None]
  - PSYCHOTIC DISORDER [None]
  - SALIVA ALTERED [None]
  - TOOTH FRACTURE [None]
